FAERS Safety Report 6272710-5 (Version None)
Quarter: 2009Q3

REPORT INFORMATION
  Report Type: 
  Country: None (occurrence: None)
  Receive Date: 20090717
  Receipt Date: 20090707
  Transmission Date: 20100115
  Serious: Yes (Hospitalization, Other)
  Sender: FDA-Public Use
  Company Number: BE-ELI_LILLY_AND_COMPANY-BE200903001203

PATIENT
  Sex: Male
  Weight: 62.2 kg

DRUGS (11)
  1. PEMETREXED [Suspect]
     Indication: NON-SMALL CELL LUNG CANCER
     Dosage: 500 MG/M2, DAY 1 EVERY 21 DAYS
     Route: 042
     Dates: start: 20090204
  2. CISPLATIN [Suspect]
     Indication: NON-SMALL CELL LUNG CANCER
     Dosage: 75 MG/M2, DAY 1 EVERY 21 DAYS
     Route: 042
     Dates: start: 20090204
  3. FOLIC ACID [Concomitant]
     Indication: PROPHYLAXIS
  4. VITAMIN B-12 [Concomitant]
     Indication: PROPHYLAXIS
  5. SOLU-MEDROL [Concomitant]
     Indication: PROPHYLAXIS
  6. MEDROL [Concomitant]
     Indication: PROPHYLAXIS
  7. PANTOPRAZOLE SODIUM [Concomitant]
     Indication: PROPHYLAXIS
     Dosage: UNK, UNK
     Dates: start: 20090101
  8. AMLOR [Concomitant]
     Indication: HYPERTENSION
  9. MS DIRECT [Concomitant]
     Indication: PAIN
     Dosage: UNK, UNK
     Dates: start: 20090101
  10. DURAGESIC-100 [Concomitant]
     Indication: PAIN
  11. DICLOFENAC [Concomitant]
     Indication: PAIN
     Dates: start: 20090101

REACTIONS (3)
  - PNEUMONIA [None]
  - RENAL TUBULAR NECROSIS [None]
  - SEPSIS [None]
